FAERS Safety Report 19661628 (Version 5)
Quarter: 2022Q3

REPORT INFORMATION
  Report Type: Report from Study
  Country: IN (occurrence: IN)
  Receive Date: 20210805
  Receipt Date: 20220330
  Transmission Date: 20221027
  Serious: Yes (Other)
  Sender: FDA-Public Use
  Company Number: IN-002147023-NVSC2020IN302171

PATIENT

DRUGS (4)
  1. RUXOLITINIB [Suspect]
     Active Substance: RUXOLITINIB
     Indication: Primary myelofibrosis
     Dosage: 10 MG, BID
     Route: 048
     Dates: start: 201703, end: 20201104
  2. RUXOLITINIB [Suspect]
     Active Substance: RUXOLITINIB
     Dosage: 25 MG (15 MG IN MORNING 10 MG IN EVENING)
     Route: 048
     Dates: start: 20201105
  3. RUXOLITINIB [Suspect]
     Active Substance: RUXOLITINIB
     Dosage: 25 MG (15 MG IN MORNING 10 MG IN EVENING)
     Route: 065
     Dates: start: 20220221
  4. RUXOLITINIB [Suspect]
     Active Substance: RUXOLITINIB
     Dosage: 15 MG (10 MG IN THE MORNING AND 5 MG IN THE EVENING)
     Route: 065
     Dates: start: 20220908

REACTIONS (8)
  - Feeling hot [Not Recovered/Not Resolved]
  - White blood cell count increased [Unknown]
  - Hepatomegaly [Recovering/Resolving]
  - Paralysis [Recovered/Resolved]
  - Incorrect dose administered [Not Recovered/Not Resolved]
  - Drug intolerance [Not Recovered/Not Resolved]
  - Product use issue [Not Recovered/Not Resolved]
  - Blood pressure abnormal [Recovering/Resolving]

NARRATIVE: CASE EVENT DATE: 20170501
